FAERS Safety Report 8396888-2 (Version None)
Quarter: 2012Q2

REPORT INFORMATION
  Report Type: 
  Country: None (occurrence: None)
  Receive Date: 20120530
  Receipt Date: 20120525
  Transmission Date: 20120825
  Serious: Yes (Death, Disabling)
  Sender: FDA-Public Use
  Company Number: IT-CELGENEUS-083-C5013-10112925

PATIENT
  Sex: Male
  Weight: 65 kg

DRUGS (10)
  1. LENALIDOMIDE [Suspect]
     Indication: MULTIPLE MYELOMA
     Dosage: 10 MILLIGRAM
     Route: 048
     Dates: start: 20101020, end: 20101026
  2. TORSEMIDE [Concomitant]
     Indication: HYPERTENSION
     Dosage: 10 MILLIGRAM
     Route: 048
     Dates: start: 20100927
  3. NEBIVOLOL HCL [Concomitant]
     Indication: HYPERTENSION
     Dosage: 2.5 MILLIGRAM
     Route: 048
     Dates: start: 19950101
  4. LANSOPRAZOLE [Concomitant]
     Indication: PROPHYLAXIS
     Dosage: 30 MILLIGRAM
     Route: 048
     Dates: start: 20101020
  5. DEXAMETHASONE [Suspect]
     Indication: MULTIPLE MYELOMA
     Dosage: 20 MILLIGRAM
     Route: 065
     Dates: start: 20101020, end: 20101116
  6. BACTRIM [Concomitant]
     Dosage: 2 TABLET
     Route: 048
     Dates: start: 20101020
  7. CANDESARTAN CILEXETIL [Concomitant]
     Indication: HYPERTENSION
     Dosage: 16 MILLIGRAM
     Route: 048
     Dates: start: 19950101
  8. ASPIRIN [Concomitant]
     Indication: THROMBOSIS PROPHYLAXIS
     Dosage: 100 MILLIGRAM
     Route: 048
     Dates: start: 19950101
  9. LASIX [Concomitant]
     Indication: OEDEMA
     Dosage: 2 TABLET
     Route: 048
     Dates: start: 20101110
  10. DOBETIN [Concomitant]
     Indication: ASTHENIA
     Route: 065
     Dates: start: 20101103

REACTIONS (1)
  - GENERAL PHYSICAL HEALTH DETERIORATION [None]
